FAERS Safety Report 17291998 (Version 2)
Quarter: 2020Q1

REPORT INFORMATION
  Report Type: Report from Study
  Country: ES (occurrence: ES)
  Receive Date: 20200121
  Receipt Date: 20200218
  Transmission Date: 20200409
  Serious: Yes (Hospitalization, Other)
  Sender: FDA-Public Use
  Company Number: ES-ROCHE-2524844

PATIENT
  Age: 61 Year
  Sex: Female
  Weight: 64.8 kg

DRUGS (6)
  1. TRASTUZUMAB. [Suspect]
     Active Substance: TRASTUZUMAB
     Indication: HER-2 POSITIVE BREAST CANCER
     Dosage: NUMBER OF CYCLES- 11, DAY 1?ON 11/APR/2019, SHE RECEIVED THE MOST RECENT DOSE OF TRASTUZUMAB (600 MG
     Route: 058
     Dates: start: 20180802
  2. SIMVASTATIN. [Concomitant]
     Active Substance: SIMVASTATIN
     Indication: DYSLIPIDAEMIA
  3. CARBOPLATINO [Suspect]
     Active Substance: CARBOPLATIN
     Indication: HER-2 POSITIVE BREAST CANCER
     Dosage: ON 11/APR/2019, SHE RECEIVED THE MOST RECENT DOSE OF CARBOPLATIN (630 MG) PRIOR TO SERIOUS ADVERSE E
     Route: 042
     Dates: start: 20190227
  4. PERTUZUMAB. [Suspect]
     Active Substance: PERTUZUMAB
     Indication: HER-2 POSITIVE BREAST CANCER
     Dosage: LOADING DOSE?DATE OF MOST RECENT DOSE OF PERTUZUMAB WAS REPORTED AS 11/APR/2019
     Route: 042
     Dates: start: 20190802
  5. PERTUZUMAB. [Suspect]
     Active Substance: PERTUZUMAB
     Dosage: MAINTENANCE DOSE?NUMBER OF CYCLES- 11, DAY 1?ON 23 MAY 2019 SHE RECEIVED THE MOST RECENT DOSE OF PER
     Route: 042
  6. DOCETAXEL. [Suspect]
     Active Substance: DOCETAXEL
     Indication: HER-2 POSITIVE BREAST CANCER
     Dosage: DATE OF LAST DOSE ADMINISTERED PRIOR TO ONSET OF SERIOUS ADVERSE EVENT ON 11/APR/2019
     Route: 042
     Dates: start: 20190227

REACTIONS (5)
  - Gastrointestinal toxicity [Recovered/Resolved]
  - Vomiting [Recovering/Resolving]
  - Nausea [Recovering/Resolving]
  - Hypokalaemia [Unknown]
  - Hyponatraemia [Unknown]

NARRATIVE: CASE EVENT DATE: 20190502
